FAERS Safety Report 4866934-9 (Version None)
Quarter: 2005Q4

REPORT INFORMATION
  Report Type: 
  Country: None (occurrence: None)
  Receive Date: 20051222
  Receipt Date: 20051213
  Transmission Date: 20060501
  Serious: Yes (Hospitalization)
  Sender: FDA-Public Use
  Company Number: 2005153811

PATIENT
  Age: 37 Year
  Sex: Female
  Weight: 43 kg

DRUGS (4)
  1. DOSTINEX [Suspect]
     Indication: HABITUAL ABORTION
     Dosage: 0.25 MG (0.25 MG, 1 IN 10 D), ORAL
     Route: 048
     Dates: start: 20050716, end: 20051024
  2. METFORMIN HCL [Suspect]
     Indication: HABITUAL ABORTION
     Dosage: 500 MG (250 MG, 2 IN 1 D), ORAL
     Route: 048
     Dates: start: 20050716, end: 20051031
  3. DUPHASTON [Suspect]
     Indication: HABITUAL ABORTION
     Dosage: 20 MG (10 MG, 2 IN 1 D), ORAL
     Route: 048
     Dates: start: 20050815, end: 20050922
  4. SEXOVID (CYCLOFENIL) [Suspect]
     Indication: HABITUAL ABORTION
     Dosage: 600 MG (200 MG, 3 IN 1 D), ORAL
     Route: 048
     Dates: start: 20050729, end: 20051025

REACTIONS (3)
  - ALANINE AMINOTRANSFERASE INCREASED [None]
  - ASPARTATE AMINOTRANSFERASE INCREASED [None]
  - HEPATIC FUNCTION ABNORMAL [None]
